FAERS Safety Report 22282923 (Version 1)
Quarter: 2023Q2

REPORT INFORMATION
  Report Type: Spontaneous
  Country: LK (occurrence: LK)
  Receive Date: 20230504
  Receipt Date: 20230504
  Transmission Date: 20230721
  Serious: Yes (Hospitalization, Other)
  Sender: FDA-Public Use
  Company Number: LK-Indoco-000417

PATIENT
  Age: 73 Year
  Sex: Male

DRUGS (2)
  1. NEOSTIGMINE METHYLSULFATE [Suspect]
     Active Substance: NEOSTIGMINE METHYLSULFATE
     Indication: Gastroparesis postoperative
     Dosage: INFUSION OF 0.4 MG/ H FOR 4 HOURS, REPEATED AFTER 6 HOURS
  2. TAMSULOSIN [Concomitant]
     Active Substance: TAMSULOSIN
     Indication: Prostatic obstruction

REACTIONS (1)
  - Urinary retention [Recovered/Resolved]
